FAERS Safety Report 8398582-0 (Version None)
Quarter: 2012Q2

REPORT INFORMATION
  Report Type: 
  Country: None (occurrence: None)
  Receive Date: 20120524
  Receipt Date: 20120306
  Transmission Date: 20120825
  Serious: Yes (Hospitalization)
  Sender: FDA-Public Use
  Company Number: 2012SP020520

PATIENT
  Age: 51 Year
  Sex: Male
  Weight: 92 kg

DRUGS (4)
  1. COPEGUS [Suspect]
     Indication: HEPATITIS C
     Dosage: 1000 MG;QD;PO 600 MG;QD;PO
     Route: 048
     Dates: start: 20120216, end: 20120411
  2. COPEGUS [Suspect]
     Indication: HEPATITIS C
     Dosage: 1000 MG;QD;PO 600 MG;QD;PO
     Route: 048
     Dates: start: 20120412
  3. VICTRELIS [Suspect]
     Indication: HEPATITIS C
     Dosage: 2400 MG;QD;PO
     Route: 048
     Dates: start: 20120315
  4. PEGASYS [Suspect]
     Indication: HEPATITIS C
     Dosage: 180 MCG;QW;SC
     Route: 058
     Dates: start: 20120216

REACTIONS (5)
  - FATIGUE [None]
  - ANAL ABSCESS [None]
  - WHITE BLOOD CELL COUNT DECREASED [None]
  - SKIN DISORDER [None]
  - HEADACHE [None]
